FAERS Safety Report 8953205 (Version 3)
Quarter: 2013Q1

REPORT INFORMATION
  Report Type: Spontaneous
  Country: JP (occurrence: JP)
  Receive Date: 20121206
  Receipt Date: 20130222
  Transmission Date: 20140127
  Serious: Yes (Hospitalization, Disabling)
  Sender: FDA-Public Use
  Company Number: JP-AMGEN-JPNSP2012078044

PATIENT
  Age: 60 Year
  Sex: Male
  Weight: 69.9 kg

DRUGS (15)
  1. ENBREL [Suspect]
     Indication: RHEUMATOID ARTHRITIS
     Dosage: 25 MG, QWK
     Route: 058
     Dates: start: 20121017, end: 20121114
  2. METHOTREXATE SODIUM [Suspect]
     Indication: PRODUCT USED FOR UNKNOWN INDICATION
     Dosage: 10 MG, WEEKLY
     Route: 048
     Dates: end: 20111005
  3. METHOTREXATE SODIUM [Suspect]
     Dosage: 12 MG, WEEKLY
     Route: 048
     Dates: start: 20111006, end: 20120606
  4. METHOTREXATE SODIUM [Suspect]
     Dosage: 14 MG, WEEKLY
     Route: 048
     Dates: start: 20120607, end: 20120905
  5. METHOTREXATE SODIUM [Suspect]
     Dosage: 16 MG, WEEKLY
     Route: 048
     Dates: start: 20120906, end: 20121212
  6. PREDONINE                          /00016201/ [Concomitant]
     Indication: PRODUCT USED FOR UNKNOWN INDICATION
     Dosage: 10 MG, DAILY
     Route: 048
     Dates: end: 20110629
  7. PREDONINE                          /00016201/ [Concomitant]
     Dosage: 7.5 MG, DAILY
     Route: 048
     Dates: start: 20110701, end: 20111202
  8. PREDONINE                          /00016201/ [Concomitant]
     Dosage: 5 MG, DAILY
     Route: 048
     Dates: start: 20111229, end: 20120509
  9. PREDONINE                          /00016201/ [Concomitant]
     Dosage: 2.5 MG, DAILY
     Route: 048
     Dates: start: 20120510, end: 20120905
  10. PREDONINE                          /00016201/ [Concomitant]
     Dosage: 5 MG, DAILY
     Route: 048
     Dates: start: 20120906
  11. TAKEPRON [Concomitant]
     Indication: PRODUCT USED FOR UNKNOWN INDICATION
     Dosage: 15 MG, DAILY
     Route: 048
  12. LIPITOR [Concomitant]
     Indication: PRODUCT USED FOR UNKNOWN INDICATION
     Dosage: 10 MG, DAILY
     Route: 048
  13. FOLIAMIN [Concomitant]
     Indication: PRODUCT USED FOR UNKNOWN INDICATION
     Dosage: 10 MG, WEEKLY
     Route: 048
     Dates: end: 20121121
  14. BONOTEO [Concomitant]
     Indication: PRODUCT USED FOR UNKNOWN INDICATION
     Dosage: 50 MG, MONTHLY
     Route: 048
     Dates: start: 20120704
  15. ISCOTIN                            /00030201/ [Concomitant]
     Indication: PRODUCT USED FOR UNKNOWN INDICATION
     Dosage: 300 MG, DAILY
     Route: 048
     Dates: start: 20120926

REACTIONS (1)
  - Diffuse large B-cell lymphoma [Not Recovered/Not Resolved]
